FAERS Safety Report 5941084-9 (Version None)
Quarter: 2008Q4

REPORT INFORMATION
  Report Type: 
  Country: None (occurrence: None)
  Receive Date: 20081031
  Receipt Date: 20081016
  Transmission Date: 20090506
  Serious: Yes (Hospitalization)
  Sender: FDA-Public Use
  Company Number: CIP08002219

PATIENT
  Age: 68 Year
  Sex: Female

DRUGS (3)
  1. FURADANTIN [Suspect]
     Indication: URINARY TRACT INFECTION
     Dosage: 50 MG THREE TIMES DAILY, ORAL
     Route: 048
     Dates: start: 20080801, end: 20080801
  2. FURADANTIN [Suspect]
     Indication: URINARY TRACT INFECTION
     Dosage: 50 MG THREE TIMES DAILY, ORAL
     Route: 048
     Dates: start: 20081003, end: 20081006
  3. CLAMOXYL /00249601/ (AMOXICILLIN) [Concomitant]

REACTIONS (13)
  - ARTHRALGIA [None]
  - BLINDNESS UNILATERAL [None]
  - BODY TEMPERATURE INCREASED [None]
  - BONE PAIN [None]
  - CONDITION AGGRAVATED [None]
  - DYSPNOEA [None]
  - ERYTHEMA [None]
  - HAEMATURIA [None]
  - MUSCULOSKELETAL CHEST PAIN [None]
  - MUSCULOSKELETAL PAIN [None]
  - MYALGIA [None]
  - NECK PAIN [None]
  - TEMPORAL ARTERITIS [None]
